FAERS Safety Report 8344101-4 (Version None)
Quarter: 2012Q2

REPORT INFORMATION
  Report Type: 
  Country: None (occurrence: None)
  Receive Date: 20120508
  Receipt Date: 20101207
  Transmission Date: 20120825
  Serious: Yes (Other)
  Sender: FDA-Public Use
  Company Number: US-BAYER-201040670NA

PATIENT
  Age: 16 Year
  Sex: Female
  Weight: 52.154 kg

DRUGS (8)
  1. NAPRELAN [Concomitant]
     Dosage: UNK
  2. ALEVE SINUS + HEADACHE [Concomitant]
     Dosage: UNK
     Dates: start: 20091201
  3. PRILOSEC [Concomitant]
     Dosage: UNK
     Dates: start: 20091201
  4. YAZ [Suspect]
     Indication: MENSTRUATION IRREGULAR
     Dosage: UNK
     Dates: start: 20081001, end: 20090101
  5. ZANTAC [Concomitant]
     Dosage: UNK
     Dates: start: 20090101
  6. YAZ [Suspect]
     Dosage: UNK
     Dates: start: 20090101
  7. EMERGEN-C [Concomitant]
     Dosage: UNK
     Dates: start: 20070101, end: 20100101
  8. TYLENOL (CAPLET) [Concomitant]
     Dosage: UNK
     Dates: start: 20091201

REACTIONS (8)
  - DIARRHOEA [None]
  - SWELLING [None]
  - OVARIAN CYST [None]
  - DECREASED APPETITE [None]
  - WEIGHT DECREASED [None]
  - NAUSEA [None]
  - CHOLECYSTITIS CHRONIC [None]
  - ABDOMINAL PAIN UPPER [None]
